FAERS Safety Report 21141471 (Version 1)
Quarter: 2022Q3

REPORT INFORMATION
  Report Type: Spontaneous
  Country: US (occurrence: US)
  Receive Date: 20220728
  Receipt Date: 20220728
  Transmission Date: 20221026
  Serious: No
  Sender: FDA-Public Use
  Company Number: US-ALKERMES INC.-ALK-2022-003608

PATIENT
  Age: 36 Year
  Sex: Female

DRUGS (3)
  1. VIVITROL [Suspect]
     Active Substance: NALTREXONE
     Indication: Alcoholism
     Dosage: 380 MILLIGRAM, QMO, NO DOSE ADMINISTERED
     Route: 030
     Dates: start: 20220720
  2. VIVITROL [Suspect]
     Active Substance: NALTREXONE
     Dosage: 380 MILLIGRAM, QMO
     Route: 030
     Dates: start: 20220615, end: 20220615
  3. VIVITROL [Suspect]
     Active Substance: NALTREXONE
     Dosage: 380 MILLIGRAM, QMO
     Route: 030
     Dates: start: 202110, end: 202110

REACTIONS (3)
  - Product preparation error [Recovered/Resolved]
  - Product physical issue [Recovered/Resolved]
  - Product reconstitution quality issue [Recovered/Resolved]

NARRATIVE: CASE EVENT DATE: 20220720
